FAERS Safety Report 24155801 (Version 1)
Quarter: 2024Q3

REPORT INFORMATION
  Report Type: Spontaneous
  Country: BT (occurrence: BT)
  Receive Date: 20240731
  Receipt Date: 20240731
  Transmission Date: 20241016
  Serious: Yes (Other)
  Sender: RANBAXY
  Company Number: BT-SUN PHARMACEUTICAL INDUSTRIES LTD-2024RR-460068

PATIENT
  Age: 50 Year
  Sex: Male

DRUGS (2)
  1. RISPERIDONE [Suspect]
     Active Substance: RISPERIDONE
     Indication: Delusional disorder, unspecified type
     Dosage: UNK
     Route: 065
  2. CHLORPROMAZINE [Suspect]
     Active Substance: CHLORPROMAZINE
     Indication: Delusional disorder, unspecified type
     Dosage: UNK
     Route: 065

REACTIONS (1)
  - Tardive dyskinesia [Recovering/Resolving]
